FAERS Safety Report 24527635 (Version 2)
Quarter: 2024Q4

REPORT INFORMATION
  Report Type: Spontaneous
  Country: ES (occurrence: ES)
  Receive Date: 20241021
  Receipt Date: 20241104
  Transmission Date: 20250115
  Serious: Yes (Hospitalization, Other)
  Sender: AMGEN
  Company Number: ES-ROCHE-10000100417

PATIENT
  Sex: Male
  Weight: 62 kg

DRUGS (3)
  1. BEVACIZUMAB [Suspect]
     Active Substance: BEVACIZUMAB
     Indication: Hepatic cancer
     Dosage: 15 MILLIGRAM/KILOGRAM (THE PATIENT RECEIVED THE 15TH CYCLE ON 05/DEC/2023)
     Route: 065
     Dates: start: 202301
  2. ATEZOLIZUMAB [Suspect]
     Active Substance: ATEZOLIZUMAB
     Indication: Hepatic cancer
     Dosage: 1200 MILLIGRAM (THE PATIENT RECEIVED THE 15TH CYCLE ON 05/DEC/2023)
     Route: 065
     Dates: start: 202301
  3. HYDROCHLOROTHIAZIDE\IRBESARTAN [Concomitant]
     Active Substance: HYDROCHLOROTHIAZIDE\IRBESARTAN
     Indication: Hypertension
     Dosage: UNK
     Route: 065

REACTIONS (10)
  - Alpha 1 foetoprotein increased [Unknown]
  - Tumour thrombosis [Unknown]
  - Hepatic encephalopathy [Unknown]
  - Hepatic failure [Unknown]
  - Ascites [Unknown]
  - Off label use [Unknown]
  - Blood urea increased [Unknown]
  - Varices oesophageal [Unknown]
  - Anaemia [Unknown]
  - Constipation [Unknown]
